FAERS Safety Report 18600836 (Version 2)
Quarter: 2020Q4

REPORT INFORMATION
  Report Type: Spontaneous
  Country: JP (occurrence: JP)
  Receive Date: 20201210
  Receipt Date: 20201214
  Transmission Date: 20210114
  Serious: Yes (Life-Threatening, Hospitalization, Other)
  Sender: FDA-Public Use
  Company Number: JP-PFIZER INC-2020422155

PATIENT
  Age: 52 Year
  Sex: Male
  Weight: 58.6 kg

DRUGS (2)
  1. INLYTA [Suspect]
     Active Substance: AXITINIB
     Indication: RENAL CANCER METASTATIC
     Dosage: 5 MG, 2X/DAY, AFTER BREAKFAST AND DINNER
     Route: 048
     Dates: start: 20201028
  2. BAVENCIO [Suspect]
     Active Substance: AVELUMAB
     Indication: RENAL CANCER METASTATIC
     Dosage: 600 MG, CYCLIC (1X/DAY, EVERY 14 DAYS)
     Route: 041
     Dates: start: 20201028

REACTIONS (1)
  - Infusion related reaction [Recovered/Resolved]

NARRATIVE: CASE EVENT DATE: 20201028
